FAERS Safety Report 4912884-9 (Version None)
Quarter: 2006Q1

REPORT INFORMATION
  Report Type: 
  Country: None (occurrence: None)
  Receive Date: 20060215
  Receipt Date: 20060208
  Transmission Date: 20060701
  Serious: Yes (Other)
  Sender: FDA-Public Use
  Company Number: PHNU2006DE00865

PATIENT
  Sex: Female

DRUGS (7)
  1. TRILEPTAL [Suspect]
     Indication: EPILEPSY
     Dosage: 300 MG, BID
     Dates: start: 20060101
  2. TEMGESIC [Concomitant]
     Dosage: UNK, PRN
  3. NEXIUM [Concomitant]
  4. FLUIMUCIL LONG [Concomitant]
  5. UNACID [Concomitant]
  6. NOVALGIN                                /SCH/ [Concomitant]
  7. VALORON [Concomitant]

REACTIONS (3)
  - ASPIRATION [None]
  - GRAND MAL CONVULSION [None]
  - PNEUMONIA ASPIRATION [None]
